FAERS Safety Report 4863133-1 (Version None)
Quarter: 2005Q4

REPORT INFORMATION
  Report Type: 
  Country: None (occurrence: None)
  Receive Date: 20051201
  Receipt Date: 20051009
  Transmission Date: 20060501
  Serious: No
  Sender: FDA-Public Use
  Company Number: 32732

PATIENT

DRUGS (1)
  1. NEVANAC [Suspect]

REACTIONS (2)
  - DIARRHOEA [None]
  - VOMITING [None]
